FAERS Safety Report 9503086 (Version 2)
Quarter: 2013Q3

REPORT INFORMATION
  Report Type: Spontaneous
  Country: DE (occurrence: DE)
  Receive Date: 20130906
  Receipt Date: 20130906
  Transmission Date: 20140515
  Serious: Yes (Congenital Anomaly)
  Sender: FDA-Public Use
  Company Number: DE-UCBSA-011189

PATIENT
  Sex: 0

DRUGS (1)
  1. KEPPRA [Suspect]
     Indication: PARTIAL SEIZURES
     Dosage: 3000 MG
     Route: 064

REACTIONS (8)
  - Spina bifida [Unknown]
  - Congenital spinal cord anomaly [Unknown]
  - Congenital jaw malformation [Unknown]
  - Cleft lip [Unknown]
  - Limb malformation [Unknown]
  - Congenital anomaly [Unknown]
  - Ductus venosus agenesis [Unknown]
  - Foetal exposure during pregnancy [Recovered/Resolved]
